FAERS Safety Report 16268634 (Version 1)
Quarter: 2019Q2

REPORT INFORMATION
  Report Type: Spontaneous
  Country: GB (occurrence: GB)
  Receive Date: 20190503
  Receipt Date: 20190503
  Transmission Date: 20190711
  Serious: Yes (Death)
  Sender: FDA-Public Use
  Company Number: GB-SA-2019SA089380

PATIENT
  Age: 73 Year
  Sex: Male
  Weight: 72.8 kg

DRUGS (5)
  1. CABAZITAXEL [Suspect]
     Active Substance: CABAZITAXEL
     Dosage: 20 MG/M2, QCY
     Route: 065
     Dates: start: 20190110, end: 20190110
  2. CABAZITAXEL [Suspect]
     Active Substance: CABAZITAXEL
     Dosage: 45 MG, Q3W
     Route: 042
     Dates: start: 20190131, end: 20190131
  3. CABAZITAXEL [Suspect]
     Active Substance: CABAZITAXEL
     Indication: PROSTATE CANCER METASTATIC
     Dosage: 36 MG, Q3W
     Route: 042
     Dates: start: 20181213, end: 20181213
  4. ZOLADEX LA [Concomitant]
     Active Substance: GOSERELIN ACETATE
     Indication: PROSTATE CANCER
     Dosage: 10.8 MG, UNK
     Route: 058
     Dates: start: 2012
  5. PREDNISOLONE. [Suspect]
     Active Substance: PREDNISOLONE
     Indication: PROSTATE CANCER
     Dosage: 109 MG, UNK
     Route: 048
     Dates: start: 20181213

REACTIONS (8)
  - Urosepsis [Fatal]
  - Acute kidney injury [Fatal]
  - Back pain [Unknown]
  - Pyrexia [Unknown]
  - Confusional state [Unknown]
  - Hypoglycaemia [Unknown]
  - Death [Fatal]
  - Hypotension [Unknown]

NARRATIVE: CASE EVENT DATE: 20190215
